FAERS Safety Report 12311125 (Version 1)
Quarter: 2016Q2

REPORT INFORMATION
  Report Type: Spontaneous
  Country: US (occurrence: US)
  Receive Date: 20160427
  Receipt Date: 20160427
  Transmission Date: 20160815
  Serious: Yes (Hospitalization, Other)
  Sender: FDA-Public Use
  Company Number: US-STANDARD HOMEOPATHIC COMPANY-1051095

PATIENT
  Age: 20 Month
  Sex: Female

DRUGS (3)
  1. HYLAND^S BABY TINY COLD TABLETS [Suspect]
     Active Substance: HOMEOPATHICS
     Route: 048
  2. BABY TEETHING GEL (HYLAND HOMEOPATHIC) [Suspect]
     Active Substance: ATROPA BELLADONNA\CALCIUM PHOSPHATE\CHAMOMILE\COFFEA ARABICA FRUIT
     Indication: TEETHING
     Route: 048
  3. BABY TEETHING GEL (HYLAND HOMEOPATHIC) [Suspect]
     Active Substance: ATROPA BELLADONNA\CALCIUM PHOSPHATE\CHAMOMILE\COFFEA ARABICA FRUIT
     Indication: BODY TEMPERATURE INCREASED
     Route: 048

REACTIONS (1)
  - Seizure [Unknown]

NARRATIVE: CASE EVENT DATE: 20160319
